FAERS Safety Report 9781574 (Version 4)
Quarter: 2014Q1

REPORT INFORMATION
  Report Type: Spontaneous
  Country: US (occurrence: US)
  Receive Date: 20131224
  Receipt Date: 20140303
  Transmission Date: 20141002
  Serious: Yes (Death, Hospitalization)
  Sender: FDA-Public Use
  Company Number: US-CELGENEUS-163-21880-13112885

PATIENT
  Age: 77 Year
  Sex: Male

DRUGS (2)
  1. REVLIMID [Suspect]
     Indication: PLASMA CELL MYELOMA
     Route: 048
     Dates: start: 20120823, end: 201311
  2. ANTIBIOTICS [Concomitant]
     Indication: SEPSIS
     Route: 041
     Dates: start: 201311

REACTIONS (2)
  - Sepsis pasteurella [Fatal]
  - Renal failure [Not Recovered/Not Resolved]
